FAERS Safety Report 8375848-1 (Version None)
Quarter: 2012Q2

REPORT INFORMATION
  Report Type: 
  Country: None (occurrence: None)
  Receive Date: 20120522
  Receipt Date: 20120507
  Transmission Date: 20120825
  Serious: Yes (Other)
  Sender: FDA-Public Use
  Company Number: US-JNJFOC-20120507251

PATIENT
  Sex: Male
  Weight: 81.65 kg

DRUGS (5)
  1. CONCERTA [Suspect]
     Route: 048
     Dates: start: 20120506
  2. CONCERTA [Suspect]
     Route: 048
     Dates: start: 20100101
  3. CONCERTA [Suspect]
     Route: 048
  4. OXYCODONE HCL [Concomitant]
     Indication: PAIN
     Route: 048
     Dates: end: 20111201
  5. CONCERTA [Suspect]
     Indication: ATTENTION DEFICIT/HYPERACTIVITY DISORDER
     Route: 048
     Dates: end: 20120506

REACTIONS (7)
  - PSYCHOMOTOR HYPERACTIVITY [None]
  - PAIN [None]
  - DISTURBANCE IN ATTENTION [None]
  - BACK PAIN [None]
  - ROAD TRAFFIC ACCIDENT [None]
  - DRUG INEFFECTIVE [None]
  - TREATMENT NONCOMPLIANCE [None]
